FAERS Safety Report 19403099 (Version 2)
Quarter: 2021Q3

REPORT INFORMATION
  Report Type: Spontaneous
  Country: US (occurrence: US)
  Receive Date: 20210611
  Receipt Date: 20210824
  Transmission Date: 20211014
  Serious: No
  Sender: FDA-Public Use
  Company Number: US-BEH-2021132553

PATIENT
  Sex: Male

DRUGS (5)
  1. HUMATE?P [Suspect]
     Active Substance: HUMAN COAGULATION FACTOR VIII/VON WILLEBRAND FACTOR COMPLEX
     Indication: FACTOR VIII DEFICIENCY
     Dosage: 3603 INTERNATIONAL UNIT, QOD
     Route: 042
     Dates: start: 20200805
  2. EMICIZUMAB. [Concomitant]
     Active Substance: EMICIZUMAB
  3. HUMATE?P [Suspect]
     Active Substance: HUMAN COAGULATION FACTOR VIII/VON WILLEBRAND FACTOR COMPLEX
     Indication: FACTOR VIII DEFICIENCY
     Dosage: 3603 INTERNATIONAL UNIT, QOD
     Route: 042
     Dates: start: 20200805
  4. HUMATE?P [Suspect]
     Active Substance: HUMAN COAGULATION FACTOR VIII/VON WILLEBRAND FACTOR COMPLEX
     Indication: VON WILLEBRAND^S DISEASE
     Dosage: 3606 INTERNATIONAL UNIT, QOD
     Route: 042
     Dates: start: 20210206
  5. HUMATE?P [Suspect]
     Active Substance: HUMAN COAGULATION FACTOR VIII/VON WILLEBRAND FACTOR COMPLEX
     Indication: VON WILLEBRAND^S DISEASE
     Dosage: 3606 INTERNATIONAL UNIT, QOD
     Route: 042
     Dates: start: 20210206

REACTIONS (2)
  - Treatment noncompliance [Unknown]
  - Epistaxis [Unknown]
